FAERS Safety Report 15427210 (Version 1)
Quarter: 2018Q3

REPORT INFORMATION
  Report Type: Spontaneous
  Country: US (occurrence: US)
  Receive Date: 20180925
  Receipt Date: 20180925
  Transmission Date: 20181010
  Serious: No
  Sender: FDA-Public Use
  Company Number: US-INDIVIOR LIMITED-INDV-110669-2018

PATIENT
  Age: 35 Year
  Sex: Female

DRUGS (3)
  1. HYDROCODONE [Concomitant]
     Active Substance: HYDROCODONE
     Indication: PAIN
     Dosage: UNK
     Route: 065
  2. SUBOXONE [Suspect]
     Active Substance: BUPRENORPHINE HYDROCHLORIDE\NALOXONE HYDROCHLORIDE
     Indication: DRUG DEPENDENCE
     Dosage: 1 MG IN THE MORNING/1 MG LATER IN THE AFTERNOON, IF NEEDED
     Route: 065
     Dates: start: 201802
  3. SUBOXONE [Suspect]
     Active Substance: BUPRENORPHINE HYDROCHLORIDE\NALOXONE HYDROCHLORIDE
     Dosage: 1.5MG, UNK
     Route: 065
     Dates: start: 20180429

REACTIONS (6)
  - Hypoaesthesia [Unknown]
  - Tooth disorder [Unknown]
  - Intentional product misuse [Unknown]
  - Intentional underdose [Unknown]
  - Wrong technique in product usage process [Unknown]
  - Jaw disorder [Unknown]

NARRATIVE: CASE EVENT DATE: 201802
